FAERS Safety Report 23355544 (Version 1)
Quarter: 2024Q1

REPORT INFORMATION
  Report Type: Spontaneous
  Country: US (occurrence: US)
  Receive Date: 20240102
  Receipt Date: 20240102
  Transmission Date: 20240410
  Serious: Yes (Other)
  Sender: FDA-Public Use
  Company Number: US-HALEON-USCH2023066210

PATIENT
  Age: 94 Year
  Sex: Female

DRUGS (1)
  1. CITRUCEL [Suspect]
     Active Substance: METHYLCELLULOSE (4000 CPS)\METHYLCELLULOSE (4000 MPA.S)
     Indication: Gastrointestinal disorder
     Dosage: UNK
     Dates: start: 2023

REACTIONS (2)
  - Meniere^s disease [Unknown]
  - Symptom recurrence [Unknown]
